FAERS Safety Report 19570436 (Version 1)
Quarter: 2021Q3

REPORT INFORMATION
  Report Type: Spontaneous
  Country: US (occurrence: US)
  Receive Date: 20210715
  Receipt Date: 20210715
  Transmission Date: 20211014
  Serious: No
  Sender: FDA-Public Use
  Company Number: US-PFIZER INC-2021574952

PATIENT
  Age: 67 Year

DRUGS (2)
  1. PREMARIN [Suspect]
     Active Substance: ESTROGENS, CONJUGATED
  2. TOZINAMERAN. [Suspect]
     Active Substance: TOZINAMERAN
     Indication: COVID-19 IMMUNISATION
     Dosage: DOSE NUMBER UNKNOWN, SINGLE

REACTIONS (2)
  - Illness [Unknown]
  - Feeling abnormal [Unknown]
